FAERS Safety Report 8959883 (Version 1)
Quarter: 2012Q4

REPORT INFORMATION
  Report Type: Report from Study
  Country: US (occurrence: US)
  Receive Date: 20121212
  Receipt Date: 20121212
  Transmission Date: 20130627
  Serious: Yes (Hospitalization)
  Sender: FDA-Public Use
  Company Number: US-ROCHE-668943

PATIENT
  Age: 68 Year
  Sex: Female
  Weight: 68 kg

DRUGS (3)
  1. CAPECITABINE [Suspect]
     Indication: BREAST CANCER
     Dosage: FREQUENCY: 14 DAYS ON
     Route: 048
     Dates: start: 20091006, end: 20100103
  2. AVASTIN [Concomitant]
  3. AROMASIN [Concomitant]

REACTIONS (2)
  - Platelet count decreased [Unknown]
  - Contusion [Unknown]
